FAERS Safety Report 6074321-3 (Version None)
Quarter: 2009Q1

REPORT INFORMATION
  Report Type: 
  Country: None (occurrence: None)
  Receive Date: 20090211
  Receipt Date: 20090205
  Transmission Date: 20090719
  Serious: No
  Sender: FDA-Public Use
  Company Number: US-B.I. PHARMACEUTICALS,INC./RIDGEFIELD-2009-BP-00840BP

PATIENT
  Age: 88 Year
  Sex: Female

DRUGS (6)
  1. CATAPRES-TTS-1 [Suspect]
     Indication: HYPERTENSION
     Dosage: .3MG
     Route: 061
     Dates: start: 20080101
  2. SULAR [Concomitant]
     Indication: HYPERTENSION
     Dosage: 10MG
     Route: 048
     Dates: start: 20080101
  3. SYNTHROID [Concomitant]
  4. BUMEX [Concomitant]
  5. ASPIRIN [Concomitant]
  6. XANAX [Concomitant]

REACTIONS (1)
  - BLOOD PRESSURE INCREASED [None]
